FAERS Safety Report 5568841-5 (Version None)
Quarter: 2007Q4

REPORT INFORMATION
  Report Type: 
  Country: None (occurrence: None)
  Receive Date: 20071220
  Receipt Date: 20070201
  Transmission Date: 20080405
  Serious: No
  Sender: FDA-Public Use
  Company Number: A0637980A

PATIENT
  Sex: Male

DRUGS (1)
  1. AVODART [Suspect]
     Indication: DRUG USE FOR UNKNOWN INDICATION
     Route: 048

REACTIONS (2)
  - LIBIDO INCREASED [None]
  - PEYRONIE'S DISEASE [None]
